FAERS Safety Report 16927364 (Version 2)
Quarter: 2020Q1

REPORT INFORMATION
  Report Type: Report from Study
  Country: US (occurrence: US)
  Receive Date: 20191016
  Receipt Date: 20200121
  Transmission Date: 20200409
  Serious: No
  Sender: FDA-Public Use
  Company Number: NVSC2019US004641

PATIENT
  Age: 51 Year
  Sex: Female
  Weight: 56.6 kg

DRUGS (3)
  1. TREPROSTINIL. [Suspect]
     Active Substance: TREPROSTINIL
     Indication: PULMONARY ARTERIAL HYPERTENSION
     Dosage: 80 NG/KG/MIN
     Route: 042
     Dates: start: 201905
  2. ADEMPAS [Concomitant]
     Active Substance: RIOCIGUAT
     Indication: PRODUCT USED FOR UNKNOWN INDICATION
     Dosage: UNK
     Route: 065
  3. OPSUMIT [Concomitant]
     Active Substance: MACITENTAN
     Indication: PRODUCT USED FOR UNKNOWN INDICATION
     Dosage: UNK
     Route: 065

REACTIONS (8)
  - Feeling abnormal [Unknown]
  - Blood pressure decreased [Unknown]
  - Nasopharyngitis [Unknown]
  - Dizziness [Unknown]
  - Dehydration [Unknown]
  - Oedema peripheral [Unknown]
  - Malaise [Unknown]
  - Hypertension [Unknown]

NARRATIVE: CASE EVENT DATE: 201905
